FAERS Safety Report 25949601 (Version 1)
Quarter: 2025Q4

REPORT INFORMATION
  Report Type: Spontaneous
  Country: CN (occurrence: CN)
  Receive Date: 20251022
  Receipt Date: 20251022
  Transmission Date: 20260117
  Serious: Yes (Hospitalization)
  Sender: ALEXION PHARMACEUTICALS
  Company Number: CN-AstraZeneca-CH-00954611A

PATIENT
  Age: 62 Year
  Sex: Female

DRUGS (3)
  1. TAGRISSO [Suspect]
     Active Substance: OSIMERTINIB
     Indication: Squamous cell carcinoma of lung
     Dosage: ONE TABLET PER DAY
  2. IRESSA [Suspect]
     Active Substance: GEFITINIB
     Indication: Squamous cell carcinoma of lung
     Dosage: ONE TABLET PER DAY
  3. Vometinib [Concomitant]
     Route: 065

REACTIONS (4)
  - Heart rate increased [Unknown]
  - Extrasystoles [Unknown]
  - Dyspnoea [Unknown]
  - Respiratory rate increased [Unknown]
